FAERS Safety Report 16824640 (Version 1)
Quarter: 2019Q3

REPORT INFORMATION
  Report Type: Spontaneous
  Country: BR (occurrence: BR)
  Receive Date: 20190918
  Receipt Date: 20190918
  Transmission Date: 20191005
  Serious: Yes (Other)
  Sender: FDA-Public Use
  Company Number: BR-ANIPHARMA-2019-BR-000052

PATIENT
  Sex: Male

DRUGS (4)
  1. NO MATCH [Concomitant]
     Active Substance: UNSPECIFIED INGREDIENT
     Dosage: UNK
     Route: 065
  2. CANDESARTAN. [Suspect]
     Active Substance: CANDESARTAN
     Indication: HYPERTENSION
     Dosage: UNK
     Route: 048
  3. XIGDUO XR [Suspect]
     Active Substance: DAPAGLIFLOZIN PROPANEDIOL\METFORMIN HYDROCHLORIDE
     Dosage: 10/1000 MG / DOSE TEXT: 10/1000 MG /10/1000 MG, AT NIGHT
     Route: 048
     Dates: start: 2015, end: 2019
  4. VITAMIN C [Concomitant]
     Active Substance: ASCORBIC ACID
     Dosage: UNK
     Route: 065

REACTIONS (3)
  - Back pain [Not Recovered/Not Resolved]
  - Cataract [Unknown]
  - Dyspnoea [Unknown]

NARRATIVE: CASE EVENT DATE: 201905
